FAERS Safety Report 15366734 (Version 1)
Quarter: 2018Q3

REPORT INFORMATION
  Report Type: Report from Study
  Country: US (occurrence: US)
  Receive Date: 20180910
  Receipt Date: 20180910
  Transmission Date: 20181010
  Serious: Yes (Other)
  Sender: FDA-Public Use
  Company Number: US-UCBSA-2018036681

PATIENT
  Sex: Female

DRUGS (1)
  1. LEVETIRACETAM. [Suspect]
     Active Substance: LEVETIRACETAM
     Indication: PRODUCT USED FOR UNKNOWN INDICATION
     Dosage: UNK

REACTIONS (11)
  - Blood thyroid stimulating hormone decreased [Unknown]
  - Acidosis [Unknown]
  - Breast neoplasm [Unknown]
  - Lung disorder [Unknown]
  - Injury [Unknown]
  - Arthritis [Unknown]
  - Limb injury [Unknown]
  - Joint injury [Unknown]
  - Asthma [Unknown]
  - Haematemesis [Unknown]
  - Psychogenic seizure [Unknown]
